FAERS Safety Report 5923624-9 (Version None)
Quarter: 2008Q4

REPORT INFORMATION
  Report Type: 
  Country: None (occurrence: None)
  Receive Date: 20081015
  Receipt Date: 20081001
  Transmission Date: 20090506
  Serious: Yes (Life-Threatening, Hospitalization)
  Sender: FDA-Public Use
  Company Number: 2008BM000168

PATIENT
  Age: 34 Month
  Sex: Female
  Weight: 10 kg

DRUGS (6)
  1. NAGLAZYME [Suspect]
     Indication: MUCOPOLYSACCHARIDOSIS VI
     Dosage: 10.5 MG;QW; IVDRP
     Route: 041
     Dates: start: 20080620, end: 20080815
  2. NAGLAZYME [Suspect]
     Indication: MUCOPOLYSACCHARIDOSIS VI
     Dosage: 10.5 MG;QW; IVDRP
     Route: 041
     Dates: start: 20080822
  3. CETIRIZINE HCL [Concomitant]
  4. IBUPROFEN TABLETS [Concomitant]
  5. HYDROCORTISONE [Concomitant]
  6. PREDNISOLONE [Concomitant]

REACTIONS (8)
  - ANAPHYLACTIC REACTION [None]
  - CHOKING [None]
  - DIARRHOEA [None]
  - INFUSION RELATED REACTION [None]
  - LOWER RESPIRATORY TRACT INFECTION [None]
  - UPPER RESPIRATORY TRACT INFECTION [None]
  - VIRAL INFECTION [None]
  - VOMITING [None]
